FAERS Safety Report 22522828 (Version 1)
Quarter: 2023Q2

REPORT INFORMATION
  Report Type: Spontaneous
  Country: DE (occurrence: DE)
  Receive Date: 20230605
  Receipt Date: 20230605
  Transmission Date: 20230722
  Serious: Yes (Death, Other)
  Sender: FDA-Public Use
  Company Number: DE-STRIDES ARCOLAB LIMITED-2023SP008729

PATIENT
  Age: 61 Year
  Sex: Male

DRUGS (12)
  1. CARBOPLATIN [Suspect]
     Active Substance: CARBOPLATIN
     Indication: Small cell lung cancer
     Dosage: UNK
     Route: 065
     Dates: start: 2020, end: 2020
  2. ETOPOSIDE [Suspect]
     Active Substance: ETOPOSIDE
     Indication: Small cell lung cancer
     Dosage: UNK
     Route: 065
     Dates: start: 2020, end: 2020
  3. MYCOPHENOLATE MOFETIL [Suspect]
     Active Substance: MYCOPHENOLATE MOFETIL
     Indication: Immunosuppressant drug therapy
     Dosage: UNK
     Route: 065
  4. MYCOPHENOLATE MOFETIL [Suspect]
     Active Substance: MYCOPHENOLATE MOFETIL
     Indication: Small cell lung cancer
  5. PREDNISOLONE [Suspect]
     Active Substance: PREDNISOLONE
     Indication: Ectopic ACTH syndrome
     Dosage: UNK
     Route: 065
     Dates: start: 2021
  6. ATEZOLIZUMAB [Suspect]
     Active Substance: ATEZOLIZUMAB
     Indication: Small cell lung cancer
     Dosage: UNK, CYCLICAL (4 CYCLES OF COMBINED THERAPY)
     Route: 065
     Dates: start: 2020
  7. ATEZOLIZUMAB [Suspect]
     Active Substance: ATEZOLIZUMAB
     Dosage: UNK, CYCLICAL (2 CYCLES OF MAINTENANCE THERAPY)
     Route: 065
     Dates: start: 2020, end: 2020
  8. METYRAPONE [Suspect]
     Active Substance: METYRAPONE
     Indication: Hyperadrenocorticism
     Dosage: UNK
     Route: 065
     Dates: start: 2020, end: 2020
  9. METYRAPONE [Suspect]
     Active Substance: METYRAPONE
     Indication: Paraneoplastic syndrome
  10. METHYLPREDNISOLONE [Suspect]
     Active Substance: METHYLPREDNISOLONE
     Indication: Immunosuppressant drug therapy
     Dosage: UNK
     Route: 065
  11. METHYLPREDNISOLONE [Suspect]
     Active Substance: METHYLPREDNISOLONE
     Indication: Small cell lung cancer
  12. TOPOTECAN [Suspect]
     Active Substance: TOPOTECAN HYDROCHLORIDE
     Indication: Small cell lung cancer
     Dosage: UNK, CYCLICAL (SECOND-LINE THERAPY)
     Route: 065
     Dates: end: 2021

REACTIONS (4)
  - Death [Fatal]
  - Neoplasm progression [Unknown]
  - Drug ineffective [Unknown]
  - Off label use [Unknown]

NARRATIVE: CASE EVENT DATE: 20210101
